FAERS Safety Report 10489320 (Version 2)
Quarter: 2014Q4

REPORT INFORMATION
  Report Type: Spontaneous
  Country: US (occurrence: US)
  Receive Date: 20141002
  Receipt Date: 20141117
  Transmission Date: 20150528
  Serious: Yes (Other)
  Sender: FDA-Public Use
  Company Number: US-TEVA-512760USA

PATIENT
  Sex: Female

DRUGS (1)
  1. PARAGARD T380A [Suspect]
     Active Substance: COPPER
     Indication: CONTRACEPTION
     Route: 015
     Dates: start: 20120126

REACTIONS (7)
  - Menorrhagia [Unknown]
  - Menstruation irregular [Unknown]
  - Uterine haemorrhage [Unknown]
  - Exposure during pregnancy [Recovered/Resolved]
  - Pain [Unknown]
  - Abortion induced [Recovered/Resolved]
  - Embedded device [Recovered/Resolved]

NARRATIVE: CASE EVENT DATE: 201309
